FAERS Safety Report 7631165-6 (Version None)
Quarter: 2011Q3

REPORT INFORMATION
  Report Type: 
  Country: None (occurrence: None)
  Receive Date: 20110725
  Receipt Date: 20110711
  Transmission Date: 20111222
  Serious: Yes (Hospitalization)
  Sender: FDA-Public Use
  Company Number: GB-RANBAXY-2011R1-46125

PATIENT
  Age: 82 Year
  Sex: Male

DRUGS (1)
  1. AMOXICILLIN [Suspect]
     Indication: PRODUCT USED FOR UNKNOWN INDICATION
     Dosage: 10 ML, TID
     Route: 048

REACTIONS (1)
  - ANAPHYLACTIC REACTION [None]
